FAERS Safety Report 8742679 (Version 2)
Quarter: 2012Q4

REPORT INFORMATION
  Report Type: 
  Country: BR (occurrence: BR)
  Receive Date: 20120824
  Receipt Date: 20120904
  Transmission Date: 20130627
  Serious: Yes (Other)
  Sender: FDA-Public Use
  Company Number: BR-PFIZER INC-2012204526

PATIENT
  Age: 61 Year
  Sex: Female

DRUGS (5)
  1. FRONTAL [Suspect]
     Indication: DEPRESSION
     Dosage: 1 mg, 2x/day
     Route: 048
     Dates: start: 20060821
  2. FRONTAL [Suspect]
     Dosage: 1 mg, 2x/day
     Route: 048
     Dates: start: 20070821
  3. AMPLICTIL [Concomitant]
     Indication: PAIN
     Dosage: one tablet once daily
     Dates: start: 2008
  4. MICARDIS HCT [Concomitant]
     Indication: HYPERTENSION
     Dosage: one tablet once daily
  5. VENLIFT [Concomitant]
     Indication: DEPRESSION
     Dosage: one tablet wice daily
     Dates: start: 2004

REACTIONS (3)
  - Fall [Unknown]
  - Intervertebral disc injury [Unknown]
  - Spinal pain [Unknown]
